FAERS Safety Report 9248266 (Version 1)
Quarter: 2013Q2

REPORT INFORMATION
  Report Type: Spontaneous
  Country: FR (occurrence: FR)
  Receive Date: 20130423
  Receipt Date: 20130423
  Transmission Date: 20140414
  Serious: Yes (Death)
  Sender: FDA-Public Use
  Company Number: FR-009507513-1304FRA008181

PATIENT
  Age: 72 Year
  Sex: Male

DRUGS (7)
  1. TIENAM 500MG/500MG, POUDRE POUR PERFUSION [Suspect]
     Dosage: UNK
     Route: 042
     Dates: start: 20121118
  2. NORADRENALINE MYLAN [Suspect]
     Dosage: 96 MG (4MG IN 1 HOUR)
     Route: 042
     Dates: start: 20121118
  3. HEPARIN SODIUM PANPHARMA [Suspect]
     Dosage: UNK
     Route: 042
     Dates: start: 20121118
  4. SUFENTANIL MERCK [Suspect]
     Dosage: UNK
     Route: 042
     Dates: start: 20121118
  5. MIDAZOLAM PANPHARMA [Suspect]
     Dosage: UNK
     Route: 042
     Dates: start: 20121118
  6. NIMBEX [Suspect]
     Dosage: UNK
     Route: 042
     Dates: start: 20121118
  7. VANCOMYCIN MYLAN [Suspect]
     Dosage: UNK
     Route: 042
     Dates: start: 20121118

REACTIONS (1)
  - Intestinal ischaemia [Fatal]
